FAERS Safety Report 10446166 (Version 1)
Quarter: 2014Q3

REPORT INFORMATION
  Report Type: Spontaneous
  Country: RU (occurrence: RU)
  Receive Date: 20140911
  Receipt Date: 20140911
  Transmission Date: 20150326
  Serious: Yes (Other)
  Sender: FDA-Public Use
  Company Number: RU-ROCHE-1459621

PATIENT
  Sex: Female

DRUGS (1)
  1. XELODA [Suspect]
     Active Substance: CAPECITABINE
     Indication: BREAST CANCER METASTATIC
     Route: 065
     Dates: start: 2010

REACTIONS (5)
  - Hallucination [Unknown]
  - Abdominal distension [Unknown]
  - Insomnia [Unknown]
  - Metastases to liver [Unknown]
  - Pelvic fluid collection [Unknown]

NARRATIVE: CASE EVENT DATE: 2010
